FAERS Safety Report 8604921-5 (Version None)
Quarter: 2012Q3

REPORT INFORMATION
  Report Type: 
  Country: None (occurrence: None)
  Receive Date: 20120808
  Receipt Date: 20120808
  Transmission Date: 20120928
  Serious: Yes (Hospitalization)
  Sender: FDA-Public Use
  Company Number: None

PATIENT
  Age: 53 Year
  Sex: Female
  Weight: 62.1 kg

DRUGS (1)
  1. TRISENOX [Suspect]
     Dosage: 15.5MG TWICE A WEEK
     Dates: start: 20120716, end: 20120804

REACTIONS (1)
  - FEMUR FRACTURE [None]
